FAERS Safety Report 16909373 (Version 1)
Quarter: 2019Q4

REPORT INFORMATION
  Report Type: Spontaneous
  Country: US (occurrence: US)
  Receive Date: 20190820
  Receipt Date: 20190820
  Transmission Date: 20200122
  Serious: Yes (Hospitalization, Other)
  Sender: FDA-Public Use
  Company Number: None

PATIENT
  Age: 66 Year
  Sex: Female
  Weight: 80.74 kg

DRUGS (8)
  1. VALSARTIN [Suspect]
     Active Substance: VALSARTAN
     Indication: HYPERTENSION
     Dosage: ?          QUANTITY:1 DF DOSAGE FORM;?
     Route: 048
     Dates: start: 20190105, end: 20190108
  2. ASA [Suspect]
     Active Substance: ASPIRIN
  3. ACIPHEX [Suspect]
     Active Substance: RABEPRAZOLE SODIUM
  4. VITAMIN E [Concomitant]
     Active Substance: .ALPHA.-TOCOPHEROL
  5. AMLODIPINE [Concomitant]
     Active Substance: AMLODIPINE BESYLATE
  6. METAMUCIL [Concomitant]
     Active Substance: PLANTAGO SEED
  7. CALCIUM [Concomitant]
     Active Substance: CALCIUM
  8. HCTZ [Concomitant]
     Active Substance: HYDROCHLOROTHIAZIDE

REACTIONS (4)
  - Dizziness [None]
  - Dehydration [None]
  - Headache [None]
  - Diarrhoea [None]

NARRATIVE: CASE EVENT DATE: 20190105
